FAERS Safety Report 19539732 (Version 2)
Quarter: 2021Q3

REPORT INFORMATION
  Report Type: Spontaneous
  Country: IN (occurrence: IN)
  Receive Date: 20210713
  Receipt Date: 20210719
  Transmission Date: 20211014
  Serious: Yes (Other)
  Sender: FDA-Public Use
  Company Number: IN-PFIZER INC-2021812016

PATIENT
  Age: 6 Month
  Sex: Male

DRUGS (2)
  1. AMIKACIN. [Suspect]
     Active Substance: AMIKACIN
     Dosage: UNK
  2. MEROPENEM. [Suspect]
     Active Substance: MEROPENEM
     Indication: EVIDENCE BASED TREATMENT
     Dosage: UNK

REACTIONS (1)
  - Meningitis bacterial [Recovering/Resolving]
